FAERS Safety Report 5320219-5 (Version None)
Quarter: 2007Q2

REPORT INFORMATION
  Report Type: 
  Country: None (occurrence: None)
  Receive Date: 20070509
  Receipt Date: 20070430
  Transmission Date: 20071010
  Serious: Yes (Hospitalization)
  Sender: FDA-Public Use
  Company Number: B0456659A

PATIENT
  Sex: Female

DRUGS (1)
  1. LAMICTAL [Suspect]
     Indication: EPILEPSY
     Route: 048
     Dates: start: 20061101, end: 20061201

REACTIONS (11)
  - CELL DEATH [None]
  - CHOLESTASIS [None]
  - DRUG RASH WITH EOSINOPHILIA AND SYSTEMIC SYMPTOMS [None]
  - EOSINOPHILIA [None]
  - FACE OEDEMA [None]
  - HAEMATURIA [None]
  - HEPATITIS ACUTE [None]
  - LYMPHADENOPATHY [None]
  - PERIORBITAL OEDEMA [None]
  - PYREXIA [None]
  - RASH MACULAR [None]
